FAERS Safety Report 7291476-3 (Version None)
Quarter: 2011Q1

REPORT INFORMATION
  Report Type: 
  Country: None (occurrence: None)
  Receive Date: 20110214
  Receipt Date: 20110203
  Transmission Date: 20110831
  Serious: Yes (Other)
  Sender: FDA-Public Use
  Company Number: JP-ELI_LILLY_AND_COMPANY-JP201102001768

PATIENT
  Age: 65 Year
  Sex: Female

DRUGS (4)
  1. CYMBALTA [Suspect]
     Indication: DEPRESSION
     Dosage: 45 MG, DAILY (1/D)
     Route: 048
     Dates: start: 20110118, end: 20110203
  2. LENDORMIN [Concomitant]
     Route: 048
  3. SEROQUEL [Concomitant]
     Route: 048
  4. WINTERMIN [Concomitant]
     Route: 048

REACTIONS (1)
  - HEPATIC FUNCTION ABNORMAL [None]
